FAERS Safety Report 14497443 (Version 1)
Quarter: 2018Q1

REPORT INFORMATION
  Report Type: Spontaneous
  Country: US (occurrence: US)
  Receive Date: 20180207
  Receipt Date: 20180207
  Transmission Date: 20180509
  Serious: No
  Sender: FDA-Public Use
  Company Number: US-JNJFOC-20171117578

PATIENT
  Sex: Female

DRUGS (4)
  1. VISINE [Suspect]
     Active Substance: TETRAHYDROZOLINE HYDROCHLORIDE
     Indication: EYE PRURITUS
     Dosage: FEW DROPS, EACH MORNING
     Route: 048
  2. VISINE [Suspect]
     Active Substance: TETRAHYDROZOLINE HYDROCHLORIDE
     Indication: DRY EYE
     Dosage: FEW DROPS, EACH MORNING
     Route: 048
  3. VISINE [Suspect]
     Active Substance: TETRAHYDROZOLINE HYDROCHLORIDE
     Indication: LACRIMATION INCREASED
     Dosage: FEW DROPS, EACH MORNING
     Route: 048
  4. VISINE [Suspect]
     Active Substance: TETRAHYDROZOLINE HYDROCHLORIDE
     Indication: OCULAR HYPERAEMIA
     Dosage: FEW DROPS, EACH MORNING
     Route: 048

REACTIONS (5)
  - Drug ineffective for unapproved indication [Unknown]
  - Incorrect route of drug administration [Unknown]
  - Diarrhoea [Unknown]
  - Drug ineffective [Unknown]
  - Wrong technique in product usage process [Unknown]
